FAERS Safety Report 12368497 (Version 1)
Quarter: 2016Q2

REPORT INFORMATION
  Report Type: Not Available
  Country: NL (occurrence: NL)
  Receive Date: 20160513
  Receipt Date: 20160513
  Transmission Date: 20160815
  Serious: Yes (Hospitalization)
  Sender: FDA-Public Use
  Company Number: NL-PURDUE PHARMA-GBR-2016-0036064

PATIENT
  Age: 63 Year
  Sex: Male

DRUGS (2)
  1. OXYCODONE HCL PR TABLET [Suspect]
     Active Substance: OXYCODONE HYDROCHLORIDE
     Indication: HERNIA
     Dosage: 10 MG, BID
     Route: 065
     Dates: start: 20160415
  2. OXYCODONE HYDROCHLORIDE. [Suspect]
     Active Substance: OXYCODONE HYDROCHLORIDE
     Indication: HERNIA
     Dosage: 4 TIMES PER 1 AS NECESSARY1 DF
     Route: 065
     Dates: start: 20160415

REACTIONS (1)
  - Deep vein thrombosis [Recovering/Resolving]

NARRATIVE: CASE EVENT DATE: 20160502
